FAERS Safety Report 8310595-3 (Version None)
Quarter: 2012Q2

REPORT INFORMATION
  Report Type: 
  Country: None (occurrence: None)
  Receive Date: 20120425
  Receipt Date: 20120425
  Transmission Date: 20120825
  Serious: Yes (Death, Life-Threatening, Hospitalization, Disabling, Congenital Anomaly, Other)
  Sender: FDA-Public Use
  Company Number: None

PATIENT
  Age: 36 Year
  Sex: Female
  Weight: 73 kg

DRUGS (1)
  1. MIRENA [Suspect]
     Indication: CONTRACEPTION

REACTIONS (6)
  - LOSS OF CONSCIOUSNESS [None]
  - ACTIVITIES OF DAILY LIVING IMPAIRED [None]
  - DISORIENTATION [None]
  - EPILEPSY [None]
  - AMNESIA [None]
  - CONVULSION [None]
